FAERS Safety Report 6378653-0 (Version None)
Quarter: 2009Q3

REPORT INFORMATION
  Report Type: 
  Country: None (occurrence: None)
  Receive Date: 20090928
  Receipt Date: 20090914
  Transmission Date: 20100115
  Serious: Yes (Hospitalization)
  Sender: FDA-Public Use
  Company Number: US-ELI_LILLY_AND_COMPANY-US200908004261

PATIENT
  Sex: Male
  Weight: 100.68 kg

DRUGS (27)
  1. PEMETREXED [Suspect]
     Indication: NON-SMALL CELL LUNG CANCER STAGE IV
     Dosage: 500 MG/M2, OTHER
     Route: 042
     Dates: start: 20090812
  2. CARBOPLATIN [Suspect]
     Indication: NON-SMALL CELL LUNG CANCER STAGE IV
     Dosage: 6 D/F, OTHER
     Route: 042
     Dates: start: 20090812
  3. BEVACIZUMAB [Suspect]
     Indication: NON-SMALL CELL LUNG CANCER STAGE IV
     Dosage: 15 MG/KG, OTHER
     Route: 042
     Dates: start: 20090812
  4. VITAMIN B-12 [Concomitant]
     Indication: PREMEDICATION
     Dosage: 1000 UG, OTHER
     Route: 058
     Dates: start: 20090724
  5. FOLIC ACID [Concomitant]
     Dosage: 400 UG, DAILY (1/D)
     Route: 048
     Dates: start: 20080101
  6. PREDNISONE [Concomitant]
     Indication: CHRONIC OBSTRUCTIVE PULMONARY DISEASE
     Dosage: 20 MG, 2/D
     Route: 048
     Dates: start: 20090801, end: 20090805
  7. PREDNISONE [Concomitant]
     Dosage: 15 MG, 2/D
     Route: 048
     Dates: start: 20090806, end: 20090810
  8. PREDNISONE [Concomitant]
     Dosage: 10 MG, 2/D
     Route: 048
     Dates: start: 20090811, end: 20090815
  9. PREDNISONE [Concomitant]
     Dosage: 5 MG, 2/D
     Route: 048
     Dates: start: 20090816, end: 20090820
  10. PREDNISONE [Concomitant]
     Dosage: 5 MG, DAILY (1/D)
     Route: 048
     Dates: start: 20090821, end: 20090825
  11. MUCINEX [Concomitant]
     Indication: CHRONIC OBSTRUCTIVE PULMONARY DISEASE
     Dosage: 600 MG, DAILY (1/D)
     Route: 048
     Dates: start: 20090731
  12. LASIX [Concomitant]
     Indication: OEDEMA
     Dosage: 40 MG, DAILY (1/D)
     Route: 047
     Dates: start: 20090801
  13. DEXAMETHASONE [Concomitant]
     Indication: PROPHYLAXIS
     Dosage: 4 MG, OTHER
     Dates: start: 20090811
  14. FENTANYL [Concomitant]
     Indication: PAIN
     Dosage: 50 UG, OTHER
     Route: 062
     Dates: start: 20090731, end: 20090805
  15. FENTANYL [Concomitant]
     Dosage: 100 UG, OTHER
     Route: 062
     Dates: start: 20090806, end: 20090817
  16. OXYCODONE HCL AND ACETAMINOPHEN [Concomitant]
     Indication: PAIN
     Dosage: UNK, AS NEEDED
     Dates: start: 20090720
  17. ALBUTEROL [Concomitant]
     Indication: CHRONIC OBSTRUCTIVE PULMONARY DISEASE
     Dosage: UNK, EVERY 4 HRS
     Dates: start: 20090714
  18. ADVAIR DISKUS 100/50 [Concomitant]
     Indication: CHRONIC OBSTRUCTIVE PULMONARY DISEASE
     Dosage: UNK, 2/D
     Dates: start: 20090714
  19. IMDUR [Concomitant]
     Dosage: 30 MG, DAILY (1/D)
     Route: 048
     Dates: start: 20080101
  20. PLAVIX [Concomitant]
     Indication: CORONARY ARTERY DISEASE
     Dosage: 75 MG, DAILY (1/D)
     Route: 048
     Dates: start: 20070101
  21. VERAPAMIL [Concomitant]
     Indication: CORONARY ARTERY DISEASE
     Dosage: 240 MG, DAILY (1/D)
     Route: 048
     Dates: start: 19790101
  22. LISINOPRIL [Concomitant]
     Indication: HYPERTENSION
     Dosage: 20 MG, DAILY (1/D)
     Route: 048
     Dates: start: 20070101
  23. PAXIL [Concomitant]
     Indication: DEPRESSION
     Dosage: 20 MG, AS NEEDED
     Route: 048
     Dates: start: 19990101
  24. HYDROCHLOROTHIAZIDE [Concomitant]
     Indication: HYPERTENSION
     Dosage: 25 MG, DAILY (1/D)
     Route: 048
     Dates: start: 19990101
  25. LIPITOR [Concomitant]
     Indication: DYSLIPIDAEMIA
     Dosage: 80 MG, DAILY (1/D)
     Route: 048
     Dates: start: 19940101
  26. AUGMENTIN '125' [Concomitant]
     Indication: PNEUMONIA
     Dates: start: 20090801
  27. IPRATROPIUM [Concomitant]

REACTIONS (1)
  - PNEUMONIA [None]
